FAERS Safety Report 8989897 (Version 1)
Quarter: 2012Q4

REPORT INFORMATION
  Report Type: 
  Country: JP (occurrence: JP)
  Receive Date: 20121228
  Receipt Date: 20121228
  Transmission Date: 20130627
  Serious: Yes (Hospitalization)
  Sender: FDA-Public Use
  Company Number: JP-GLAXOSMITHKLINE-B0846070A

PATIENT
  Age: 32 Year
  Sex: Male

DRUGS (8)
  1. LAMICTAL [Suspect]
     Indication: BIPOLAR DISORDER
     Dosage: 100MG Per day
     Route: 048
     Dates: start: 20120723
  2. LAMICTAL [Suspect]
     Indication: PRODUCT USED FOR UNKNOWN INDICATION
     Dosage: 97IUAX Per day
     Route: 048
     Dates: start: 20121109, end: 20121109
  3. ZYPREXA [Concomitant]
     Indication: BIPOLAR DISORDER
     Dosage: 10MG Per day
     Route: 048
  4. ZYPREXA [Concomitant]
     Dosage: 27IUAX Per day
     Route: 048
     Dates: start: 20121109, end: 20121109
  5. DEPAKENE-R [Concomitant]
     Indication: BIPOLAR DISORDER
     Dosage: 600MG Per day
     Route: 048
  6. DEPAKENE-R [Concomitant]
     Dosage: 81IUAX Per day
     Route: 048
     Dates: start: 20121109, end: 20121109
  7. ROHYPNOL [Concomitant]
     Indication: INSOMNIA
     Dosage: 4MG Per day
     Route: 048
  8. ROHYPNOL [Concomitant]
     Dosage: 54IUAX Per day
     Route: 048
     Dates: start: 20121109, end: 20121109

REACTIONS (4)
  - Suicide attempt [Recovered/Resolved]
  - Altered state of consciousness [Unknown]
  - Pneumonia [Unknown]
  - Intentional overdose [Unknown]
